FAERS Safety Report 12561965 (Version 1)
Quarter: 2016Q3

REPORT INFORMATION
  Report Type: Report from Study
  Country: PE (occurrence: PE)
  Receive Date: 20160715
  Receipt Date: 20160715
  Transmission Date: 20161109
  Serious: Yes (Other)
  Sender: FDA-Public Use
  Company Number: PE-009507513-1607PER006692

PATIENT
  Age: 10 Year
  Sex: Male

DRUGS (2)
  1. NASONEX [Suspect]
     Active Substance: MOMETASONE FUROATE
     Indication: RHINITIS
  2. NASONEX [Suspect]
     Active Substance: MOMETASONE FUROATE
     Indication: SINUSITIS
     Dosage: 1 PUFF MORNING AND NIGHT, BID
     Route: 045
     Dates: start: 201603, end: 20160629

REACTIONS (5)
  - Inappropriate schedule of drug administration [Unknown]
  - Prescribed overdose [Unknown]
  - Bronchial obstruction [Not Recovered/Not Resolved]
  - Adenoidal disorder [Not Recovered/Not Resolved]
  - Asthma [Not Recovered/Not Resolved]

NARRATIVE: CASE EVENT DATE: 201603
